FAERS Safety Report 11888925 (Version 2)
Quarter: 2017Q2

REPORT INFORMATION
  Report Type: Report from Study
  Country: None (occurrence: BR)
  Receive Date: 20160105
  Receipt Date: 20170630
  Transmission Date: 20170829
  Serious: Yes (Hospitalization, Other)
  Sender: FDA-Public Use
  Company Number: BR-ABBVIE-15K-020-1530560-00

PATIENT
  Age: 47 Year
  Sex: Female
  Weight: 58 kg

DRUGS (2)
  1. HUMIRA [Suspect]
     Active Substance: ADALIMUMAB
     Dosage: 1 EACH 16 OR 17 DAYS
     Route: 058
  2. HUMIRA [Suspect]
     Active Substance: ADALIMUMAB
     Indication: ANKYLOSING SPONDYLITIS
     Route: 058
     Dates: start: 20141024

REACTIONS (13)
  - Gastrointestinal inflammation [Recovered/Resolved]
  - Neck pain [Unknown]
  - Spinal osteoarthritis [Unknown]
  - Inflammation [Unknown]
  - Crohn^s disease [Recovered/Resolved]
  - Impaired gastric emptying [Unknown]
  - C-reactive protein abnormal [Unknown]
  - Crohn^s disease [Unknown]
  - Diverticulitis [Unknown]
  - Red blood cell sedimentation rate abnormal [Unknown]
  - Malaise [Recovering/Resolving]
  - Musculoskeletal stiffness [Unknown]
  - Colitis [Unknown]

NARRATIVE: CASE EVENT DATE: 201506
